FAERS Safety Report 5107295-X (Version None)
Quarter: 2006Q3

REPORT INFORMATION
  Report Type: 
  Country: None (occurrence: None)
  Receive Date: 20060914
  Receipt Date: 20060906
  Transmission Date: 20061208
  Serious: Yes (Other)
  Sender: FDA-Public Use
  Company Number: 2006108704

PATIENT
  Age: 73 Year
  Sex: Female
  Weight: 44.4525 kg

DRUGS (4)
  1. BENADRYL [Suspect]
     Indication: GASTRIC ULCER
     Dosage: 4 TEASPOONS NIGHTLY, ORAL
     Route: 048
     Dates: start: 20060828
  2. FLAGYL [Suspect]
     Indication: GASTRIC ULCER
     Dosage: 500 MG 3 TIMES DAILY, ORAL
     Route: 048
     Dates: start: 20060828
  3. TETRACYCLINE [Suspect]
     Indication: GASTRIC ULCER
     Dosage: 500 MG 4 TIMES DAILY
     Dates: start: 20060828
  4. PANTOPRAZOLE SODIUM [Suspect]
     Indication: GASTRIC ULCER
     Dosage: 40 MG TWICE DAILY
     Dates: start: 20060828

REACTIONS (1)
  - HALLUCINATION [None]
